FAERS Safety Report 25394968 (Version 4)
Quarter: 2025Q3

REPORT INFORMATION
  Report Type: Spontaneous
  Country: GT (occurrence: GT)
  Receive Date: 20250604
  Receipt Date: 20250714
  Transmission Date: 20251021
  Serious: Yes (Death, Other)
  Sender: ROCHE
  Company Number: GT-ROCHE-10000303003

PATIENT
  Age: 71 Year

DRUGS (4)
  1. TECENTRIQ [Suspect]
     Active Substance: ATEZOLIZUMAB
     Indication: Small cell lung cancer
     Route: 065
     Dates: start: 202307
  2. FILGRASTIM [Concomitant]
     Active Substance: FILGRASTIM
     Route: 042
  3. CHLORPHENIRAMINE [Concomitant]
     Active Substance: CHLORPHENIRAMINE
     Route: 042
  4. DEXAMETHASONE [Concomitant]
     Active Substance: DEXAMETHASONE
     Route: 042

REACTIONS (5)
  - Atrial flutter [Unknown]
  - Cardiac failure [Unknown]
  - Pneumonia [Unknown]
  - Hypoxia [Unknown]
  - Cardio-respiratory arrest [Fatal]

NARRATIVE: CASE EVENT DATE: 20240115
